FAERS Safety Report 8860617 (Version 1)
Quarter: 2012Q4

REPORT INFORMATION
  Report Type: 
  Country: US (occurrence: US)
  Receive Date: 20121025
  Receipt Date: 20121025
  Transmission Date: 20130627
  Serious: Yes (Other)
  Sender: FDA-Public Use
  Company Number: US-ASTRAZENECA-2011SE00389

PATIENT
  Age: 57 Year
  Sex: Female

DRUGS (12)
  1. SEROQUEL [Suspect]
     Indication: BIPOLAR DISORDER
     Route: 048
  2. SEROQUEL [Suspect]
     Indication: BIPOLAR DISORDER
     Route: 048
     Dates: start: 2010, end: 201106
  3. NEXIUM [Suspect]
     Route: 048
  4. METOPROLOL [Concomitant]
  5. LISINOPRIL [Concomitant]
  6. PRAVASTATIN [Concomitant]
  7. LAMICTAL [Concomitant]
  8. XANAX [Concomitant]
     Indication: PANIC ATTACK
  9. ECOTRIN [Concomitant]
  10. PLAVIX [Concomitant]
  11. SPIRIVA [Concomitant]
  12. ADVAIR [Concomitant]

REACTIONS (16)
  - Neoplasm malignant [Unknown]
  - Suicidal ideation [Unknown]
  - Serotonin syndrome [Unknown]
  - Dysstasia [Unknown]
  - Cardiac disorder [Unknown]
  - Activities of daily living impaired [Unknown]
  - Abasia [Unknown]
  - Blood triglycerides abnormal [Unknown]
  - Blood cholesterol abnormal [Unknown]
  - Ventricular extrasystoles [Unknown]
  - Palpitations [Unknown]
  - Weight increased [Unknown]
  - Hyperhidrosis [Unknown]
  - Malaise [Unknown]
  - Intentional drug misuse [Unknown]
  - Drug dose omission [Unknown]
